FAERS Safety Report 17995249 (Version 2)
Quarter: 2020Q3

REPORT INFORMATION
  Report Type: Spontaneous
  Country: US (occurrence: US)
  Receive Date: 20200708
  Receipt Date: 20200728
  Transmission Date: 20201103
  Serious: Yes (Other)
  Sender: FDA-Public Use
  Company Number: US-BAYER-2017-212738

PATIENT
  Sex: Female

DRUGS (5)
  1. ESSURE (ESS205) [Suspect]
     Active Substance: DEVICE
     Indication: FEMALE STERILISATION
     Dosage: UNK
     Dates: start: 20050726, end: 20160602
  2. NAPROXEN. [Concomitant]
     Active Substance: NAPROXEN
  3. MIRALAX [Concomitant]
     Active Substance: POLYETHYLENE GLYCOL 3350
  4. KLONOPIN [Concomitant]
     Active Substance: CLONAZEPAM
  5. LISINOPRIL. [Concomitant]
     Active Substance: LISINOPRIL

REACTIONS (22)
  - Weight increased [Recovered/Resolved]
  - Visual impairment [Recovered/Resolved]
  - Nausea [Recovered/Resolved]
  - Gastrointestinal disorder [Recovered/Resolved]
  - Psychological trauma [Unknown]
  - Bladder disorder [Unknown]
  - Migraine [Recovered/Resolved]
  - Nervous system disorder [Recovered/Resolved]
  - Vaginal haemorrhage [Recovered/Resolved]
  - Bacterial infection [Recovered/Resolved]
  - Fungal infection [Recovered/Resolved]
  - Vomiting [Unknown]
  - Urinary tract infection [Recovered/Resolved]
  - Weight increased [Unknown]
  - Menorrhagia [Recovered/Resolved]
  - Fatigue [Recovered/Resolved]
  - Constipation [Unknown]
  - Abdominal pain [Recovered/Resolved]
  - Device monitoring procedure not performed [Unknown]
  - Gastrooesophageal reflux disease [Unknown]
  - Dysmenorrhoea [Recovered/Resolved]
  - Alopecia [Recovered/Resolved]
